FAERS Safety Report 7490036-9 (Version None)
Quarter: 2011Q2

REPORT INFORMATION
  Report Type: 
  Country: None (occurrence: None)
  Receive Date: 20110519
  Receipt Date: 20110502
  Transmission Date: 20111010
  Serious: No
  Sender: FDA-Public Use
  Company Number: US-B.I. PHARMACEUTICALS,INC./RIDGEFIELD-2011-BP-12254BP

PATIENT
  Age: 63 Year
  Sex: Female

DRUGS (10)
  1. ASPIRIN [Concomitant]
     Indication: ROUTINE HEALTH MAINTENANCE
  2. PROAIR HFA [Concomitant]
     Indication: CHRONIC OBSTRUCTIVE PULMONARY DISEASE
  3. VICODIN [Concomitant]
     Indication: PAIN
  4. SPIRIVA [Suspect]
     Indication: CHRONIC OBSTRUCTIVE PULMONARY DISEASE
     Dosage: 18 MCG
     Route: 055
     Dates: start: 20100501
  5. PRILOSEC [Concomitant]
     Indication: GASTROOESOPHAGEAL REFLUX DISEASE
  6. GLIPIZIDE [Concomitant]
     Indication: DIABETES MELLITUS
     Dates: start: 19990101
  7. GENEVA [Concomitant]
     Indication: DIABETES MELLITUS
     Dates: start: 19990101
  8. VITAMIN B-12 [Concomitant]
     Indication: ANAEMIA
  9. LORAZEPAM [Concomitant]
     Indication: ANXIETY
  10. INSULIN [Concomitant]
     Indication: DIABETES MELLITUS
     Dates: start: 19990101

REACTIONS (1)
  - DYSPNOEA [None]
